FAERS Safety Report 6333306-X (Version None)
Quarter: 2009Q3

REPORT INFORMATION
  Report Type: 
  Country: None (occurrence: None)
  Receive Date: 20090826
  Receipt Date: 20090817
  Transmission Date: 20100115
  Serious: Yes (Death, Life-Threatening, Hospitalization)
  Sender: FDA-Public Use
  Company Number: 354534

PATIENT
  Age: 13 Month
  Sex: Female
  Weight: 8.12 kg

DRUGS (3)
  1. FOSPHENYTOIN SODIUM  INJECTION, 75 MG/ML, 2 ML + 10 ML VIALS [Suspect]
     Indication: CONVULSION
     Dosage: 160 MG OVER 10 MINUTES, INTRAVENOUS
     Route: 042
     Dates: start: 20090301, end: 20090301
  2. ROCEPHIN [Concomitant]
  3. SODIUM CHLORIDE [Concomitant]

REACTIONS (13)
  - APNOEA [None]
  - BACTERIA URINE IDENTIFIED [None]
  - BLOOD GLUCOSE INCREASED [None]
  - BLOOD UREA INCREASED [None]
  - CARDIAC ARREST [None]
  - INTRACARDIAC THROMBUS [None]
  - INTUSSUSCEPTION [None]
  - MENTAL STATUS CHANGES [None]
  - PCO2 DECREASED [None]
  - SINUS TACHYCARDIA [None]
  - SOMNOLENCE [None]
  - VIRAL MYOCARDITIS [None]
  - WHITE BLOOD CELLS URINE POSITIVE [None]
